FAERS Safety Report 8359981 (Version 4)
Quarter: 2013Q1

REPORT INFORMATION
  Report Type: Spontaneous
  Country: US (occurrence: None)
  Receive Date: 20120106
  Receipt Date: 20130314
  Transmission Date: 20140127
  Serious: Yes (Hospitalization, Other)
  Sender: FDA-Public Use
  Company Number: 2011028066

PATIENT
  Age: 34 Year
  Sex: Female
  Weight: 88.91 kg

DRUGS (53)
  1. HIZENTRA [Suspect]
     Indication: IMMUNODEFICIENCY COMMON VARIABLE
     Dosage: 2 GM 10 VIAL;50 ML (12.5 ML PER SITE) OVER APPROX 1 HOUR
     Route: 058
     Dates: start: 20110331
  2. TORADOL (METOROLAC TROMETHAMINE) [Concomitant]
  3. SINGULAIR [Concomitant]
  4. MAXALT MLT (RIZATRIPTAN BENZOATE) [Concomitant]
  5. PHENERGAN [Concomitant]
  6. XANAX [Concomitant]
  7. MS CONTIN [Concomitant]
  8. LASIX [Concomitant]
  9. TOPAMAX [Concomitant]
  10. BACLOFEN (BACLOFEN) [Concomitant]
  11. PANTANASE (OLOPATADINE) [Concomitant]
  12. ACYCLOVIR (ACYCLOVIR) [Concomitant]
  13. FLUVOXAMINE MALEATE (FLUVOXAMINE) [Concomitant]
  14. FLOVENT [Concomitant]
  15. WELLBUTRIN XL [Concomitant]
  16. KLOR-CON (POTASSIUM CHLORIDE) [Concomitant]
  17. ZINC (ZINC) [Concomitant]
  18. BENADRYL [Concomitant]
  19. MAGNESIUM (MAGNESIUM) [Concomitant]
  20. GABITRIL [Concomitant]
  21. PROAIR HFA (PROCATEROL HYDROCHLORIDE) [Concomitant]
  22. LOVAZA [Concomitant]
  23. PROMETHAZINE (PROMETHAZINE) [Concomitant]
  24. DIFIL-G (MUCOSYL) [Concomitant]
  25. TRINSICON [Concomitant]
  26. CYANO-PLEX (CYANO B-COMPLEX) [Concomitant]
  27. ADDERALL XT (OBETROL) [Concomitant]
  28. LORTAB [Concomitant]
  29. MUCINEX ER (GUAIFENESIN) [Concomitant]
  30. AVELOX [Concomitant]
  31. PREDNISONE (PREDNISONE) [Concomitant]
  32. MULTIVITAMIN (ACCOMIN MULTIVITAMIN) [Concomitant]
  33. CALCIUM (CALCIUM) [Concomitant]
  34. RECLAST [Concomitant]
  35. REPREXAIN (HYDROCODONE W/IBUPROFEN) [Concomitant]
  36. ROCEPHIN [Concomitant]
  37. VITAMIN D [Concomitant]
  38. FLONASE [Concomitant]
  39. MAGNESIUM OXIDE (MAGNESIUM OXIDE) [Concomitant]
  40. CALCIUM WITH VITAMIN D (CALCIUM WITH VITAMIN D) [Concomitant]
  41. XANAX [Concomitant]
  42. KETOROLAC (KETOROLAC) [Concomitant]
  43. MS CONTIN [Concomitant]
  44. DIPHENHYDRAMINE (DIPHENHYDRAMINE) [Concomitant]
  45. LIDOCAINE (LIDOCAINE) [Concomitant]
  46. EPI-PEN (EPINEPHRINE) [Concomitant]
  47. FENTANYL (FENTANYL) () [Concomitant]
  48. MELATONIN (MELATONIN) ( ) [Concomitant]
  49. SYMBICORT (BUDESONIDE W/FORMOTEROL FUMARATE) () [Concomitant]
  50. DUONEB (COMBIVENT /01261001/) () [Concomitant]
  51. NUCYNTA (ALL OTHER THERAPEUTIC PRODUCTS) () [Concomitant]
  52. PERCOCET (OXYCOCET) () [Concomitant]
  53. MUPIROCIN (MUPIROCIN) () [Concomitant]

REACTIONS (10)
  - Chest discomfort [None]
  - Panic attack [None]
  - Pain [None]
  - Dyspnoea [None]
  - Pneumonia [None]
  - Sinusitis [None]
  - Localised infection [None]
  - Staphylococcal infection [None]
  - Lung infection [None]
  - Staphylococcal infection [None]
